FAERS Safety Report 20648960 (Version 1)
Quarter: 2022Q1

REPORT INFORMATION
  Report Type: Spontaneous
  Country: US (occurrence: US)
  Receive Date: 20220329
  Receipt Date: 20220329
  Transmission Date: 20220423
  Serious: No
  Sender: FDA-Public Use
  Company Number: US-GLAXOSMITHKLINE-US2022AMR055621

PATIENT
  Age: 35 Year
  Sex: Female
  Weight: 74.83 kg

DRUGS (1)
  1. WELLBUTRIN XL [Suspect]
     Active Substance: BUPROPION HYDROCHLORIDE
     Indication: Perinatal depression
     Dosage: 150 MG, QD , (150 MG,1 IN 24 HR)
     Route: 048
     Dates: start: 202203

REACTIONS (2)
  - Lactation puerperal increased [Unknown]
  - Off label use [Unknown]

NARRATIVE: CASE EVENT DATE: 20220301
